FAERS Safety Report 8079248-3 (Version None)
Quarter: 2012Q1

REPORT INFORMATION
  Report Type: 
  Country: None (occurrence: None)
  Receive Date: 20120128
  Receipt Date: 20110819
  Transmission Date: 20120608
  Serious: No
  Sender: FDA-Public Use
  Company Number: US-ABBOTT-11P-163-0848120-00

PATIENT
  Sex: Male
  Weight: 75.818 kg

DRUGS (5)
  1. AMITRIPTYLINE HCL [Concomitant]
     Indication: INSOMNIA
  2. LEXAPRO [Concomitant]
     Indication: DEPRESSION
  3. METHOTREXATE [Concomitant]
     Indication: CROHN'S DISEASE
  4. HUMIRA [Suspect]
     Indication: CROHN'S DISEASE
     Dates: end: 20110801
  5. FLOMAX [Concomitant]
     Indication: PRODUCT USED FOR UNKNOWN INDICATION

REACTIONS (5)
  - PAIN [None]
  - HEADACHE [None]
  - NAUSEA [None]
  - DISEASE PROGRESSION [None]
  - ABDOMINAL PAIN [None]
